FAERS Safety Report 26017759 (Version 2)
Quarter: 2025Q4

REPORT INFORMATION
  Report Type: Spontaneous
  Country: JP (occurrence: JP)
  Receive Date: 20251110
  Receipt Date: 20251219
  Transmission Date: 20260118
  Serious: Yes (Hospitalization)
  Sender: RECORDATI
  Company Number: JP-VA000000605-2024000658

PATIENT
  Age: 66 Year
  Sex: Female

DRUGS (5)
  1. SIGNIFOR LAR [Suspect]
     Active Substance: PASIREOTIDE PAMOATE
     Indication: Acromegaly
     Dosage: 40 MG DAILY (SINGLE DOSE)
     Route: 030
     Dates: start: 20231027, end: 20231124
  2. INSULIN NOS [Concomitant]
     Active Substance: INSULIN NOS
     Indication: Product used for unknown indication
     Dosage: 4-4-6 (TID) UNKNOWN UNITS
  3. INSULIN NOS [Concomitant]
     Active Substance: INSULIN NOS
     Dosage: DOSE INCREASED TO 8-8-8 (TID) UNKNOWN UNITS
     Dates: start: 20231115
  4. LANREOTIDE [Concomitant]
     Active Substance: LANREOTIDE
     Indication: Acromegaly
     Dosage: UNK
     Dates: start: 202404
  5. PEGVISOMANT [Concomitant]
     Active Substance: PEGVISOMANT
     Indication: Acromegaly
     Dosage: UNK
     Dates: start: 202307

REACTIONS (4)
  - Urinary tract infection [Recovered/Resolved]
  - Pituitary apoplexy [Recovering/Resolving]
  - Hyperglycaemia [Recovering/Resolving]
  - Adrenal insufficiency [Recovered/Resolved]

NARRATIVE: CASE EVENT DATE: 20231101
